FAERS Safety Report 7166201-7 (Version None)
Quarter: 2010Q4

REPORT INFORMATION
  Report Type: 
  Country: None (occurrence: None)
  Receive Date: 20101202
  Receipt Date: 20101122
  Transmission Date: 20110411
  Serious: Yes (Other)
  Sender: FDA-Public Use
  Company Number: PHBS2006JP04425

PATIENT
  Age: 71 Year
  Sex: Male
  Weight: 71.0333 kg

DRUGS (3)
  1. VISUDYNE [Suspect]
     Indication: MACULAR DEGENERATION
     Dates: start: 20060108, end: 20060108
  2. NEVALOTIN [Concomitant]
  3. URINORM [Concomitant]

REACTIONS (5)
  - INTRAOCULAR PRESSURE DECREASED [None]
  - MACULAR HOLE [None]
  - RETINAL DETACHMENT [None]
  - RETINAL HAEMORRHAGE [None]
  - VITREOUS HAEMORRHAGE [None]
